FAERS Safety Report 6415185-5 (Version None)
Quarter: 2009Q4

REPORT INFORMATION
  Report Type: 
  Country: None (occurrence: None)
  Receive Date: 20091027
  Receipt Date: 20091019
  Transmission Date: 20100525
  Serious: Yes (Death, Hospitalization, Other)
  Sender: FDA-Public Use
  Company Number: NL-BAYER-NL-SHR-03-016333

PATIENT
  Age: 17 Year
  Sex: Female

DRUGS (2)
  1. YASMIN [Suspect]
     Indication: ORAL CONTRACEPTION
     Dosage: 1 TAB(S), 21D/28D [DAILY DOSE: .75 TAB(S)] [TOTAL DOSE: 116 TAB(S)]
     Route: 048
     Dates: start: 20030428, end: 20030930
  2. FURABID [Concomitant]
     Indication: CYSTITIS
     Dosage: UNIT DOSE: 100 MG
     Dates: start: 20030918, end: 20030922

REACTIONS (4)
  - CIRCULATORY COLLAPSE [None]
  - GASTROINTESTINAL HAEMORRHAGE [None]
  - MYOCARDIAL INFARCTION [None]
  - PULMONARY EMBOLISM [None]
